FAERS Safety Report 11771393 (Version 3)
Quarter: 2015Q4

REPORT INFORMATION
  Report Type: Report from Study
  Country: US (occurrence: US)
  Receive Date: 20151124
  Receipt Date: 20151221
  Transmission Date: 20160304
  Serious: Yes (Other)
  Sender: FDA-Public Use
  Company Number: US-AMGEN-USASL2015122660

PATIENT
  Sex: Female
  Weight: 67.94 kg

DRUGS (7)
  1. TRAZODONE [Concomitant]
     Active Substance: TRAZODONE HYDROCHLORIDE
     Dosage: 50 MG, 3 TAB ORAL AT BEDTIME
     Route: 048
     Dates: start: 20150906
  2. XANAX [Concomitant]
     Active Substance: ALPRAZOLAM
     Dosage: 1 MG, UNK
     Route: 048
     Dates: start: 20151112
  3. CELEBREX [Concomitant]
     Active Substance: CELECOXIB
     Dosage: 25 MG, 2 TIMES/WK
  4. HYDROCODONE-IBUPROFEN [Concomitant]
     Dosage: 7.5 MG - 200 MG TABLET 1-2 TAB ORAL EVERY TWO TO FOUR HOURS
     Route: 048
     Dates: start: 20151112
  5. PROZAC [Concomitant]
     Active Substance: FLUOXETINE HYDROCHLORIDE
     Dosage: UNK
     Route: 048
     Dates: start: 20150424
  6. ENBREL [Suspect]
     Active Substance: ETANERCEPT
     Indication: RHEUMATOID ARTHRITIS
     Dosage: 25 MG, 2 TIMES/WK
     Route: 065
     Dates: start: 200306
  7. ALPRAZOLAM. [Concomitant]
     Active Substance: ALPRAZOLAM
     Dosage: 0.5 MG, TAKE ONE TAB BY MOUTH THREE TIMES DAILY
     Route: 048
     Dates: start: 20150203

REACTIONS (27)
  - Depression [Unknown]
  - Nervousness [Unknown]
  - Weight increased [Unknown]
  - Asthenia [Unknown]
  - Stress [Unknown]
  - Depressed mood [Unknown]
  - Joint range of motion decreased [Unknown]
  - Pain [Unknown]
  - Insomnia [Unknown]
  - Fatigue [Unknown]
  - Back pain [Unknown]
  - Anxiety disorder [Unknown]
  - Major depression [Unknown]
  - Contusion [Unknown]
  - Musculoskeletal stiffness [Unknown]
  - Immunodeficiency [Unknown]
  - Anxiety [Unknown]
  - Tenderness [Unknown]
  - Sinus operation [Unknown]
  - Haemorrhage [Unknown]
  - High frequency ablation [Unknown]
  - Intervertebral disc degeneration [Unknown]
  - Mobility decreased [Unknown]
  - Radicular pain [Unknown]
  - Arthralgia [Unknown]
  - Myalgia [Unknown]
  - Gait disturbance [Unknown]
